FAERS Safety Report 7025022-6 (Version None)
Quarter: 2010Q4

REPORT INFORMATION
  Report Type: 
  Country: None (occurrence: None)
  Receive Date: 20101001
  Receipt Date: 20100921
  Transmission Date: 20110411
  Serious: Yes (Hospitalization)
  Sender: FDA-Public Use
  Company Number: DE-PFIZER INC-2010108737

PATIENT
  Age: 61 Year
  Sex: Female
  Weight: 79 kg

DRUGS (5)
  1. BLINDED *NO SUBJECT DRUG [Suspect]
     Indication: RESTLESS LEGS SYNDROME
     Dosage: 4 CAPSULES DAILY
     Route: 048
     Dates: start: 20091124
  2. BLINDED *PLACEBO [Suspect]
     Indication: RESTLESS LEGS SYNDROME
     Dosage: 4 CAPSULES DAILY
     Route: 048
     Dates: start: 20091124
  3. BLINDED *PRAMIPEXOLE 2HCL [Suspect]
     Indication: RESTLESS LEGS SYNDROME
     Dosage: 4 CAPSULES DAILY
     Route: 048
     Dates: start: 20091124
  4. BLINDED PRAMIPEXOLE 2HCL [Suspect]
     Dosage: 4 CAPSULES DAILY
     Route: 048
     Dates: start: 20091124
  5. BLINDED PREGABALIN [Suspect]
     Indication: RESTLESS LEGS SYNDROME
     Dosage: 4 CAPSULES DAILY
     Route: 048
     Dates: start: 20091124

REACTIONS (1)
  - TRANSIENT ISCHAEMIC ATTACK [None]
